FAERS Safety Report 20150551 (Version 1)
Quarter: 2021Q4

REPORT INFORMATION
  Report Type: Spontaneous
  Country: PT (occurrence: PT)
  Receive Date: 20211206
  Receipt Date: 20211206
  Transmission Date: 20220304
  Serious: Yes (Other)
  Sender: FDA-Public Use
  Company Number: PT-Accord-246550

PATIENT
  Age: 66 Year
  Sex: Female

DRUGS (1)
  1. CISPLATIN [Suspect]
     Active Substance: CISPLATIN
     Indication: Squamous cell carcinoma of the cervix

REACTIONS (3)
  - Chest pain [Unknown]
  - Electrocardiogram T wave inversion [Recovered/Resolved]
  - Syncope [Unknown]
